FAERS Safety Report 9287753 (Version 4)
Quarter: 2016Q1

REPORT INFORMATION
  Report Type: Spontaneous
  Country: US (occurrence: US)
  Receive Date: 20130514
  Receipt Date: 20160302
  Transmission Date: 20160526
  Serious: No
  Sender: FDA-Public Use
  Company Number: US-PFIZER INC-2013145902

PATIENT
  Age: 47 Year
  Sex: Female

DRUGS (38)
  1. ZOLOFT [Suspect]
     Active Substance: SERTRALINE HYDROCHLORIDE
     Dosage: UNK
  2. PLAQUENIL [Suspect]
     Active Substance: HYDROXYCHLOROQUINE SULFATE
     Dosage: UNK
  3. KEFLEX [Suspect]
     Active Substance: CEPHALEXIN
     Dosage: UNK
  4. CYMBALTA [Suspect]
     Active Substance: DULOXETINE HYDROCHLORIDE
     Dosage: UNK
  5. EXCEDRIN MIGRAINE [Suspect]
     Active Substance: ACETAMINOPHEN\ASPIRIN\CAFFEINE
  6. PERCOCET [Concomitant]
     Active Substance: ACETAMINOPHEN\OXYCODONE HYDROCHLORIDE
     Dosage: 10/325 MG, 12 DAILY IN DIVIDED DOSE
  7. FLEXERIL [Suspect]
     Active Substance: CYCLOBENZAPRINE HYDROCHLORIDE
     Dosage: UNK
  8. NORFLEX [Suspect]
     Active Substance: ORPHENADRINE CITRATE
     Dosage: UNK
  9. ULTRAM [Suspect]
     Active Substance: TRAMADOL HYDROCHLORIDE
     Dosage: UNK
  10. PAXIL [Suspect]
     Active Substance: PAROXETINE HYDROCHLORIDE
     Dosage: UNK
  11. SOMA [Concomitant]
     Active Substance: CARISOPRODOL
     Dosage: 350 MG, PRN 1/2-1 TAB 3XDAY
  12. ASPIRIN. [Suspect]
     Active Substance: ASPIRIN
     Dosage: UNK
  13. ULTRACET [Suspect]
     Active Substance: ACETAMINOPHEN\TRAMADOL HYDROCHLORIDE
     Dosage: UNK
  14. ACETYLSALICYLIC ACID [Suspect]
     Active Substance: ASPIRIN
     Dosage: UNK
  15. NAPROXEN. [Suspect]
     Active Substance: NAPROXEN
     Dosage: UNK
  16. VITAMIN D3 [Concomitant]
     Active Substance: CHOLECALCIFEROL
     Dosage: 2000 IU, 2 CAPS AM
  17. CELLCEPT [Concomitant]
     Active Substance: MYCOPHENOLATE MOFETIL\MYCOPHENOLATE MOFETIL HYDROCHLORIDE
     Dosage: 500 MG, 3 AM 2 PM
  18. NEURONTIN [Suspect]
     Active Substance: GABAPENTIN
     Dosage: UNK
  19. ALEVE [Suspect]
     Active Substance: NAPROXEN SODIUM
     Dosage: UNK
  20. PHENERGAN [Suspect]
     Active Substance: PROMETHAZINE HYDROCHLORIDE
     Dosage: UNK
  21. KLONOPIN [Concomitant]
     Active Substance: CLONAZEPAM
     Dosage: 1 MG, 3X/DAY
  22. PREDNISONE. [Suspect]
     Active Substance: PREDNISONE
     Dosage: UNK
  23. NAPROSYN [Suspect]
     Active Substance: NAPROXEN
     Dosage: UNK
  24. CENTRUM [Concomitant]
     Active Substance: VITAMINS
     Dosage: UNK, 1XAM
  25. BIOTIN [Concomitant]
     Active Substance: BIOTIN
     Dosage: 5000 UG, 2 CAPS AM, 2 CAPS PM
  26. CLARITIN [Concomitant]
     Active Substance: LORATADINE
     Dosage: 10 MG, 10 AM 1 PM
  27. KEFLEX [Suspect]
     Active Substance: CEPHALEXIN
     Dosage: UNK
  28. EXCEDRIN [Suspect]
     Active Substance: ACETAMINOPHEN\ASPIRIN\CAFFEINE
     Dosage: UNK
  29. ASA [Suspect]
     Active Substance: ASPIRIN
     Dosage: UNK
  30. VITAMIN E [Concomitant]
     Active Substance: .ALPHA.-TOCOPHEROL
     Dosage: 400 IU, 2 CAPS- PM
  31. CELEBREX [Suspect]
     Active Substance: CELECOXIB
     Dosage: UNK
  32. IBUPROFEN. [Suspect]
     Active Substance: IBUPROFEN
     Dosage: UNK
  33. RELAFEN [Suspect]
     Active Substance: NABUMETONE
  34. DARVOCET [Suspect]
     Active Substance: ACETAMINOPHEN\PROPOXYPHENE HYDROCHLORIDE
     Dosage: UNK
  35. LEVAQUIN [Suspect]
     Active Substance: LEVOFLOXACIN
     Dosage: UNK
  36. MOTRIN [Suspect]
     Active Substance: IBUPROFEN
     Dosage: UNK
  37. LYRICA [Concomitant]
     Active Substance: PREGABALIN
     Dosage: 100 MG, 2 AM 2 NOON 2 PM
  38. DILAUDID [Concomitant]
     Active Substance: HYDROMORPHONE HYDROCHLORIDE
     Dosage: 8 MG, 12 DAILY IN DIVIDED DOSE

REACTIONS (1)
  - Drug hypersensitivity [Unknown]
